FAERS Safety Report 5537319-7 (Version None)
Quarter: 2007Q4

REPORT INFORMATION
  Report Type: 
  Country: None (occurrence: None)
  Receive Date: 20071207
  Receipt Date: 20071127
  Transmission Date: 20080405
  Serious: Yes (Hospitalization)
  Sender: FDA-Public Use
  Company Number: FR-ROCHE-505490

PATIENT
  Age: 18 Year
  Sex: Female
  Weight: 36.5 kg

DRUGS (2)
  1. ROACCUTANE [Suspect]
     Indication: ACNE
     Route: 048
     Dates: start: 20041108, end: 20050412
  2. LEVONORGESTREL AND ETHINYL ESTRADIOL [Concomitant]
     Dates: start: 20041001, end: 20050601

REACTIONS (2)
  - ANOREXIA [None]
  - ANXIETY [None]
